FAERS Safety Report 11986896 (Version 1)
Quarter: 2016Q1

REPORT INFORMATION
  Report Type: Report from Study
  Country: US (occurrence: US)
  Receive Date: 20160202
  Receipt Date: 20160202
  Transmission Date: 20160526
  Serious: Yes (Other)
  Sender: FDA-Public Use
  Company Number: US-ROCHE-1700532

PATIENT
  Age: 57 Year
  Sex: Female

DRUGS (4)
  1. GEFITINIB [Suspect]
     Active Substance: GEFITINIB
     Indication: BREAST CANCER
     Route: 048
     Dates: start: 20020617
  2. GEFITINIB [Suspect]
     Active Substance: GEFITINIB
     Route: 048
  3. TRASTUZUMAB [Suspect]
     Active Substance: TRASTUZUMAB
     Indication: BREAST CANCER
     Dosage: OVER 90 MIN ON DAY ONE OF WEEK ONE.
     Route: 042
     Dates: start: 20020617
  4. TRASTUZUMAB [Suspect]
     Active Substance: TRASTUZUMAB
     Dosage: OVER 30 MIN ON DAY ONE ONCE A WEEK STARTING ON WEEK TWO TO THREE
     Route: 042

REACTIONS (3)
  - Alanine aminotransferase increased [Unknown]
  - Proteinuria [Unknown]
  - Aspartate aminotransferase increased [Unknown]

NARRATIVE: CASE EVENT DATE: 20020708
